FAERS Safety Report 14422400 (Version 1)
Quarter: 2018Q1

REPORT INFORMATION
  Report Type: Spontaneous
  Country: US (occurrence: US)
  Receive Date: 20180123
  Receipt Date: 20180123
  Transmission Date: 20180509
  Serious: No
  Sender: FDA-Public Use
  Company Number: US-AMERIGEN PHARMACEUTICALS, LTD-2040561

PATIENT
  Sex: Female

DRUGS (1)
  1. TEMOZOLOMIDE. [Suspect]
     Active Substance: TEMOZOLOMIDE
     Indication: PRODUCT USED FOR UNKNOWN INDICATION
     Route: 055

REACTIONS (6)
  - Dizziness [Unknown]
  - Accidental exposure to product [Unknown]
  - Abdominal pain upper [Unknown]
  - Back pain [Unknown]
  - Epistaxis [Unknown]
  - Headache [Unknown]
